FAERS Safety Report 4308836-2 (Version None)
Quarter: 2004Q1

REPORT INFORMATION
  Report Type: 
  Country: None (occurrence: None)
  Receive Date: 20040227
  Receipt Date: 20040216
  Transmission Date: 20041129
  Serious: Yes (Hospitalization)
  Sender: FDA-Public Use
  Company Number: 04P-167-0250788-00

PATIENT
  Age: 67 Year
  Sex: Male

DRUGS (10)
  1. HUMIRA [Suspect]
     Indication: RHEUMATOID ARTHRITIS
     Dosage: 40 MG, 1 IN 2 WK, SUBCUTANEOUS
     Route: 058
     Dates: start: 20030801, end: 20040202
  2. LANSOPRAZOLE [Concomitant]
  3. DIGOXIN [Concomitant]
  4. LOSARTAN [Concomitant]
  5. WARFARIN SODIUM [Concomitant]
  6. ALENDRONATE SODIUM [Concomitant]
  7. INSULIN [Concomitant]
  8. METFORMIN [Concomitant]
  9. BENDROFLUMETHIAZIDE [Concomitant]
  10. DEXAMETHASONE [Concomitant]

REACTIONS (6)
  - BLOOD PRESSURE INCREASED [None]
  - DIPLOPIA [None]
  - NODULE [None]
  - RASH ERYTHEMATOUS [None]
  - RASH PUSTULAR [None]
  - TENDERNESS [None]
